FAERS Safety Report 6553992-9 (Version None)
Quarter: 2010Q1

REPORT INFORMATION
  Report Type: 
  Country: None (occurrence: None)
  Receive Date: 20100127
  Receipt Date: 20100114
  Transmission Date: 20100710
  Serious: Yes (Hospitalization, Other)
  Sender: FDA-Public Use
  Company Number: DE-JNJFOC-20091206807

PATIENT
  Sex: Female
  Weight: 96 kg

DRUGS (4)
  1. TOPAMAX MIGRAENE [Suspect]
     Indication: MIGRAINE PROPHYLAXIS
     Route: 048
     Dates: start: 20090725, end: 20091216
  2. TOPAMAX MIGRAENE [Suspect]
     Route: 048
     Dates: start: 20090725, end: 20091216
  3. L-THYROXIN [Concomitant]
     Indication: HYPOTHYROIDISM
     Route: 048
  4. LAMUNA [Concomitant]
     Indication: CONTRACEPTION
     Route: 048

REACTIONS (1)
  - ERYTHEMA NODOSUM [None]
